FAERS Safety Report 9844101 (Version 1)
Quarter: 2014Q1

REPORT INFORMATION
  Report Type: Spontaneous
  Country: US (occurrence: US)
  Receive Date: 20140127
  Receipt Date: 20140127
  Transmission Date: 20141002
  Serious: Yes (Hospitalization, Other)
  Sender: FDA-Public Use
  Company Number: US-AMGEN-USASP2014004920

PATIENT
  Age: 62 Year
  Sex: Male

DRUGS (6)
  1. ENBREL [Suspect]
     Indication: ECZEMA
     Dosage: 50 MG, 2 TIMES/WK
     Route: 065
     Dates: end: 201309
  2. KEFLEX /00145501/ [Suspect]
     Indication: STAPHYLOCOCCAL INFECTION
     Dosage: FOR ONE MONTH
     Route: 048
  3. KEFLEX /00145501/ [Suspect]
     Indication: BACTERAEMIA
  4. KEFLEX /00145501/ [Suspect]
     Indication: SEPSIS
  5. KEFLEX /00145501/ [Suspect]
     Indication: CELLULITIS
  6. KEFLEX /00145501/ [Suspect]
     Indication: ABSCESS

REACTIONS (5)
  - Staphylococcal sepsis [Unknown]
  - Cellulitis [Unknown]
  - Arthralgia [Unknown]
  - Epigastric discomfort [Recovered/Resolved]
  - Eczema [Not Recovered/Not Resolved]
